FAERS Safety Report 7071798-1 (Version None)
Quarter: 2010Q4

REPORT INFORMATION
  Report Type: 
  Country: None (occurrence: None)
  Receive Date: 20101029
  Receipt Date: 20091023
  Transmission Date: 20110411
  Serious: No
  Sender: FDA-Public Use
  Company Number: A0813160A

PATIENT
  Age: 78 Year
  Sex: Male

DRUGS (4)
  1. ADVAIR DISKUS 100/50 [Suspect]
     Indication: BRONCHITIS
     Dosage: 1PUFF TWICE PER DAY
     Route: 055
     Dates: start: 20091022
  2. MICARDIS [Concomitant]
  3. AVODART [Concomitant]
  4. PREVACID [Concomitant]

REACTIONS (3)
  - EXPIRED DRUG ADMINISTERED [None]
  - FATIGUE [None]
  - HYPERTENSION [None]
